FAERS Safety Report 8422998-7 (Version None)
Quarter: 2012Q2

REPORT INFORMATION
  Report Type: 
  Country: None (occurrence: None)
  Receive Date: 20120608
  Receipt Date: 20120605
  Transmission Date: 20120825
  Serious: Yes (Hospitalization)
  Sender: FDA-Public Use
  Company Number: US-BAYER-2012-055901

PATIENT
  Sex: Male

DRUGS (1)
  1. AVELOX [Suspect]

REACTIONS (4)
  - SWELLING FACE [None]
  - ANAPHYLACTIC REACTION [None]
  - LIP SWELLING [None]
  - PARAESTHESIA ORAL [None]
